FAERS Safety Report 4348471-3 (Version None)
Quarter: 2004Q2

REPORT INFORMATION
  Report Type: 
  Country: None (occurrence: None)
  Receive Date: 20040427
  Receipt Date: 20040105
  Transmission Date: 20050107
  Serious: No
  Sender: FDA-Public Use
  Company Number: US-GLAXOSMITHKLINE-A0491317A

PATIENT
  Age: 46 Year
  Sex: Female

DRUGS (3)
  1. VENTOLIN [Suspect]
     Indication: ASTHMA
     Dosage: 2PUFF TWICE PER DAY
     Route: 055
     Dates: start: 20031230, end: 20031230
  2. FLOVENT [Concomitant]
  3. ALBUTEROL [Concomitant]
     Route: 048

REACTIONS (4)
  - ASTHMA [None]
  - CHEST DISCOMFORT [None]
  - LARYNGEAL OEDEMA [None]
  - WHEEZING [None]
